FAERS Safety Report 13422250 (Version 1)
Quarter: 2017Q2

REPORT INFORMATION
  Report Type: Spontaneous
  Country: US (occurrence: US)
  Receive Date: 20170407
  Receipt Date: 20170407
  Transmission Date: 20170830
  Serious: Yes (Disabling, Other)
  Sender: FDA-Public Use
  Company Number: None

PATIENT
  Age: 31 Year
  Sex: Male
  Weight: 83.25 kg

DRUGS (1)
  1. CITALOPRAM [Suspect]
     Active Substance: CITALOPRAM HYDROBROMIDE
     Indication: DEPRESSION
     Route: 048
     Dates: start: 20160215, end: 20170315

REACTIONS (4)
  - Male orgasmic disorder [None]
  - Erectile dysfunction [None]
  - Genital hypoaesthesia [None]
  - Libido decreased [None]

NARRATIVE: CASE EVENT DATE: 20160315
